FAERS Safety Report 9309399 (Version 2)
Quarter: 2013Q3

REPORT INFORMATION
  Report Type: Spontaneous
  Country: US (occurrence: US)
  Receive Date: 20130525
  Receipt Date: 20130711
  Transmission Date: 20140515
  Serious: Yes (Other)
  Sender: FDA-Public Use
  Company Number: US-BRISTOL-MYERS SQUIBB COMPANY-18706531

PATIENT
  Age: 80 Year
  Sex: Male
  Weight: 97.05 kg

DRUGS (12)
  1. BYDUREON [Suspect]
     Indication: TYPE 2 DIABETES MELLITUS
     Route: 058
     Dates: start: 20130303
  2. METFORMIN [Concomitant]
     Indication: TYPE 2 DIABETES MELLITUS
     Route: 048
  3. AMARYL [Concomitant]
  4. PREDNISONE [Concomitant]
  5. PHENERGAN [Concomitant]
  6. GLIMEPIRIDE [Concomitant]
  7. HYDROCHLOROTHIAZIDE [Concomitant]
     Route: 048
  8. ATORVASTATIN CALCIUM [Concomitant]
     Route: 048
  9. POTASSIUM [Concomitant]
     Route: 048
  10. HYDROCODONE + ACETAMINOPHEN [Concomitant]
     Dosage: 1DF:7.5/325MG
     Route: 048
  11. LIPITOR [Concomitant]
  12. TYLENOL [Concomitant]

REACTIONS (7)
  - Spinal compression fracture [Unknown]
  - Injection site haemorrhage [Recovered/Resolved]
  - Blood glucose fluctuation [Recovering/Resolving]
  - Vomiting [Unknown]
  - Weight decreased [Unknown]
  - Decreased appetite [Unknown]
  - Nausea [Unknown]
